FAERS Safety Report 25658634 (Version 1)
Quarter: 2025Q3

REPORT INFORMATION
  Report Type: Spontaneous
  Country: CA (occurrence: CA)
  Receive Date: 20250808
  Receipt Date: 20250808
  Transmission Date: 20251021
  Serious: Yes (Other)
  Sender: NORDIC PHARMA
  Company Number: CA-NORDICGR-063552

PATIENT
  Age: 14 Year
  Sex: Male
  Weight: 90 kg

DRUGS (3)
  1. METHOTREXATE SODIUM [Suspect]
     Active Substance: METHOTREXATE SODIUM
     Indication: Uveitis
     Dosage: DOSAGE: 1 DOSAGE FORMS 1 EVERY 1 WEEKS
     Route: 058
  2. NAPHAZOLINE HYDROCHLORIDE [Concomitant]
     Active Substance: NAPHAZOLINE HYDROCHLORIDE
     Indication: Intraocular pressure increased
     Route: 065
  3. ABRILADA [ADALIMUMAB AFZB] [Concomitant]
     Indication: Uveitis
     Route: 058

REACTIONS (3)
  - Uveitis [Not Recovered/Not Resolved]
  - Gastrointestinal disorder [Not Recovered/Not Resolved]
  - Product use in unapproved indication [Not Recovered/Not Resolved]
